FAERS Safety Report 17468080 (Version 1)
Quarter: 2020Q1

REPORT INFORMATION
  Report Type: Spontaneous
  Country: US (occurrence: US)
  Receive Date: 20200225
  Receipt Date: 20200225
  Transmission Date: 20200409
  Serious: Yes (Death)
  Sender: FDA-Public Use
  Company Number: None

PATIENT
  Age: 25 Year
  Sex: Male
  Weight: 69.75 kg

DRUGS (3)
  1. KRATOM [Suspect]
     Active Substance: HERBALS\MITRAGYNINE
     Indication: DEPRESSION
     Dosage: ?          OTHER ROUTE:TEA?
     Dates: start: 20160101, end: 20190303
  2. KRATOM [Suspect]
     Active Substance: HERBALS\MITRAGYNINE
     Indication: INSOMNIA
     Dosage: ?          OTHER ROUTE:TEA?
     Dates: start: 20160101, end: 20190303
  3. KRATOM [Suspect]
     Active Substance: HERBALS\MITRAGYNINE
     Indication: ANXIETY
     Dosage: ?          OTHER ROUTE:TEA?
     Dates: start: 20160101, end: 20190303

REACTIONS (3)
  - Withdrawal syndrome [None]
  - Product quality issue [None]
  - Death [None]

NARRATIVE: CASE EVENT DATE: 20160101
